FAERS Safety Report 16399171 (Version 3)
Quarter: 2019Q4

REPORT INFORMATION
  Report Type: Report from Study
  Country: US (occurrence: US)
  Receive Date: 20190606
  Receipt Date: 20191004
  Transmission Date: 20200122
  Serious: Yes (Other)
  Sender: FDA-Public Use
  Company Number: US-ALEXION PHARMACEUTICALS INC.-A201908333

PATIENT
  Sex: Female

DRUGS (1)
  1. STRENSIQ [Suspect]
     Active Substance: ASFOTASE ALFA
     Indication: HYPOPHOSPHATASIA
     Route: 065

REACTIONS (10)
  - Walking disability [Unknown]
  - Mental fatigue [Unknown]
  - Depressed mood [Unknown]
  - Lipodystrophy acquired [Unknown]
  - Bone pain [Unknown]
  - Arthralgia [Unknown]
  - Injection site pain [Unknown]
  - Injection site haemorrhage [Unknown]
  - Nephrocalcinosis [Unknown]
  - Drug ineffective [Unknown]
